FAERS Safety Report 5124009-8 (Version None)
Quarter: 2006Q3

REPORT INFORMATION
  Report Type: 
  Country: None (occurrence: None)
  Receive Date: 20060808
  Receipt Date: 20050919
  Transmission Date: 20061208
  Serious: Yes (Hospitalization)
  Sender: FDA-Public Use
  Company Number: 2005-09-1060

PATIENT
  Sex: Female

DRUGS (1)
  1. K-DUR 10 [Suspect]
     Indication: DRUG USE FOR UNKNOWN INDICATION
     Dosage: ORAL
     Route: 048

REACTIONS (3)
  - MALAISE [None]
  - UNEVALUABLE EVENT [None]
  - VOMITING [None]
